FAERS Safety Report 22196121 (Version 1)
Quarter: 2023Q2

REPORT INFORMATION
  Report Type: Spontaneous
  Country: CN (occurrence: CN)
  Receive Date: 20230411
  Receipt Date: 20230411
  Transmission Date: 20230721
  Serious: Yes (Other)
  Sender: FDA-Public Use
  Company Number: None

PATIENT
  Age: 53 Year
  Sex: Female
  Weight: 50 kg

DRUGS (4)
  1. CYCLOPHOSPHAMIDE [Suspect]
     Active Substance: CYCLOPHOSPHAMIDE
     Indication: Breast cancer female
     Dosage: 0.95 G, QD (DILUTED WITH 0.9% SODIUM CHLORIDE INJECTION 50 ML)
     Route: 041
     Dates: start: 20230310, end: 20230310
  2. SODIUM CHLORIDE [Suspect]
     Active Substance: SODIUM CHLORIDE
     Indication: Medication dilution
     Dosage: 50 ML, QD, STRENGTH: 0.9%, DOSAGE FORM: INJECTION (USED TO DILUTE CYCLOPHOSPHAMIDE 0.95 G)
     Route: 041
     Dates: start: 20230310, end: 20230310
  3. SODIUM CHLORIDE [Suspect]
     Active Substance: SODIUM CHLORIDE
     Dosage: 100 ML, QD, STRENGTH: 0.9%, DOSAGE FORM: INJECTION (USED TO DILUTE EPIRUBICIN 140 MG)
     Route: 041
     Dates: start: 20230310, end: 20230310
  4. EPIRUBICIN HYDROCHLORIDE [Suspect]
     Active Substance: EPIRUBICIN HYDROCHLORIDE
     Indication: Breast cancer female
     Dosage: 140 MG, QD (DILUTED WITH 0.9% SODIUM CHLORIDE INJECTION 100 ML)
     Route: 041
     Dates: start: 20230310, end: 20230310

REACTIONS (3)
  - White blood cell count decreased [Recovered/Resolved]
  - Asthenia [Recovered/Resolved]
  - Fatigue [Unknown]

NARRATIVE: CASE EVENT DATE: 20230318
